FAERS Safety Report 9881133 (Version 1)
Quarter: 2014Q1

REPORT INFORMATION
  Report Type: Spontaneous
  Country: IT (occurrence: IT)
  Receive Date: 20140207
  Receipt Date: 20140207
  Transmission Date: 20141002
  Serious: Yes (Other)
  Sender: FDA-Public Use
  Company Number: IT-TEVA-460123ISR

PATIENT
  Age: 48 Year
  Sex: Male
  Weight: 59 kg

DRUGS (2)
  1. CARBOPLATINO TEVA [Suspect]
     Indication: NEUROENDOCRINE CARCINOMA
     Dosage: 560 MILLIGRAM DAILY;
     Route: 042
     Dates: start: 20131231, end: 20131231
  2. ETOPOSIDE TEVA [Suspect]
     Indication: NEUROENDOCRINE CARCINOMA
     Dosage: 170 MG/M2 DAILY;
     Route: 042
     Dates: start: 20131031, end: 20140103

REACTIONS (2)
  - Hypertensive crisis [Recovering/Resolving]
  - Angina pectoris [Recovering/Resolving]
